FAERS Safety Report 8421696-3 (Version None)
Quarter: 2012Q2

REPORT INFORMATION
  Report Type: 
  Country: None (occurrence: None)
  Receive Date: 20120608
  Receipt Date: 20110527
  Transmission Date: 20120825
  Serious: No
  Sender: FDA-Public Use
  Company Number: US-GLAXOSMITHKLINE-A0929523A

PATIENT
  Age: 22 Year
  Sex: Female

DRUGS (14)
  1. ROZEREM [Concomitant]
  2. LORAZEPAM [Concomitant]
  3. ALTABAX [Suspect]
     Indication: STAPHYLOCOCCAL INFECTION
     Dosage: 1APP TWICE PER DAY
     Route: 061
     Dates: start: 20110401, end: 20110523
  4. XANAX [Concomitant]
  5. VIMPAT [Concomitant]
  6. BACLOFEN [Concomitant]
  7. KEPPRA [Concomitant]
  8. BACTRIM [Concomitant]
  9. LAMICTAL [Concomitant]
  10. CLOBAZAM [Concomitant]
  11. GLYCOPYRROLATE [Concomitant]
  12. DANTRIUM [Concomitant]
  13. UNKNOWN MEDICATION [Concomitant]
  14. RESPARITOL [Concomitant]

REACTIONS (7)
  - APPLICATION SITE PAIN [None]
  - APPLICATION SITE ERYTHEMA [None]
  - SKIN EXFOLIATION [None]
  - BLISTER [None]
  - DRUG INEFFECTIVE [None]
  - DERMATITIS [None]
  - NASOPHARYNGITIS [None]
